FAERS Safety Report 4928231-2 (Version None)
Quarter: 2006Q1

REPORT INFORMATION
  Report Type: 
  Country: None (occurrence: None)
  Receive Date: 20060223
  Receipt Date: 20060201
  Transmission Date: 20060701
  Serious: Yes (Hospitalization)
  Sender: FDA-Public Use
  Company Number: FR200602000092

PATIENT
  Age: 65 Year
  Sex: Female

DRUGS (12)
  1. FORTEO [Suspect]
     Indication: OSTEOPOROSIS
     Dosage: 20 UG DAILY (1/D) SUBCUTANEOUS
     Route: 058
     Dates: start: 20050214, end: 20051226
  2. FORTEO [Concomitant]
  3. PLAVIX [Concomitant]
  4. DILTIAZEM HCL [Concomitant]
  5. NOVATREX (METHOTREXATE) [Concomitant]
  6. LIPANOR (CIPROFIBRATE) [Concomitant]
  7. CORTANCYL (PRENISONE) [Concomitant]
  8. POTASSIUM CHLORIDE [Concomitant]
  9. PULMICORT [Concomitant]
  10. COMBIVENT [Concomitant]
  11. FORADIL [Concomitant]
  12. DAFLON (DIOSMIN) [Concomitant]

REACTIONS (4)
  - FOOT FRACTURE [None]
  - HYPERHIDROSIS [None]
  - PALPITATIONS [None]
  - POLYURIA [None]
